FAERS Safety Report 7281410-4 (Version None)
Quarter: 2011Q1

REPORT INFORMATION
  Report Type: 
  Country: None (occurrence: None)
  Receive Date: 20110208
  Receipt Date: 20110128
  Transmission Date: 20110831
  Serious: Yes (Other)
  Sender: FDA-Public Use
  Company Number: US-ELI_LILLY_AND_COMPANY-US201101007500

PATIENT
  Age: 64 Year
  Sex: Male

DRUGS (3)
  1. TAXOL [Concomitant]
     Indication: LUNG NEOPLASM MALIGNANT
  2. CARBOPLATIN [Concomitant]
  3. ALIMTA [Suspect]
     Indication: LUNG SQUAMOUS CELL CARCINOMA STAGE UNSPECIFIED

REACTIONS (1)
  - RESPIRATORY FAILURE [None]
